FAERS Safety Report 16970959 (Version 2)
Quarter: 2019Q4

REPORT INFORMATION
  Report Type: Report from Study
  Country: JP (occurrence: JP)
  Receive Date: 20191029
  Receipt Date: 20191223
  Transmission Date: 20200122
  Serious: Yes (Hospitalization, Other)
  Sender: FDA-Public Use
  Company Number: JP-SA-2019SA197728

PATIENT
  Age: 59 Year
  Sex: Male
  Weight: 79 kg

DRUGS (32)
  1. IRINOTECAN [Suspect]
     Active Substance: IRINOTECAN
     Dosage: 92 MG/M2, Q4W
     Route: 065
     Dates: start: 20180623, end: 20180721
  2. IRINOTECAN [Suspect]
     Active Substance: IRINOTECAN
     Dosage: 92 MG/M2, 1X
     Route: 065
     Dates: start: 20181117, end: 20181117
  3. FLUOROURACIL. [Suspect]
     Active Substance: FLUOROURACIL
     Indication: COLON CANCER
     Dosage: 240 MG/M2, 1X
     Route: 040
     Dates: start: 20180528, end: 20180528
  4. FLUOROURACIL. [Suspect]
     Active Substance: FLUOROURACIL
     Dosage: 240 MG/M2, Q4W
     Route: 040
     Dates: start: 20180813, end: 20180910
  5. AFLIBERCEPT [Suspect]
     Active Substance: AFLIBERCEPT
     Dosage: 4 MG/KG, Q4W
     Route: 041
     Dates: start: 20180813, end: 20180910
  6. AFLIBERCEPT [Suspect]
     Active Substance: AFLIBERCEPT
     Dosage: 4 MG/KG, 1X
     Route: 041
     Dates: start: 20181009, end: 20181009
  7. CALCIUM FOLINATE [Suspect]
     Active Substance: LEUCOVORIN CALCIUM
     Dosage: 200 MG/M2, 1X
     Route: 065
     Dates: start: 20181009, end: 20181009
  8. CALCIUM FOLINATE [Suspect]
     Active Substance: LEUCOVORIN CALCIUM
     Dosage: 200 MG/M2, 1X
     Route: 065
     Dates: start: 20190128, end: 20190128
  9. IRINOTECAN [Suspect]
     Active Substance: IRINOTECAN
     Dosage: 92 MG/M2, Q4W
     Route: 065
     Dates: start: 20180813, end: 20180910
  10. IRINOTECAN [Suspect]
     Active Substance: IRINOTECAN
     Dosage: 92 MG/M2, Q4W
     Route: 065
     Dates: start: 20181210, end: 20190107
  11. IRINOTECAN [Suspect]
     Active Substance: IRINOTECAN
     Dosage: 92 MG/M2, 1X
     Route: 065
     Dates: start: 20190128, end: 20190128
  12. FLUOROURACIL. [Suspect]
     Active Substance: FLUOROURACIL
     Dosage: 1450 MG/M2, 1X
     Route: 041
     Dates: start: 20181009, end: 20181009
  13. FLUOROURACIL. [Suspect]
     Active Substance: FLUOROURACIL
     Dosage: 240 MG/M2, 1X
     Route: 040
     Dates: start: 20181117, end: 20181117
  14. FLUOROURACIL. [Suspect]
     Active Substance: FLUOROURACIL
     Dosage: 1450 MG/M2, 1X
     Route: 041
     Dates: start: 20181117, end: 20181117
  15. FLUOROURACIL. [Suspect]
     Active Substance: FLUOROURACIL
     Dosage: 1450 MG/M2, Q4W
     Route: 041
     Dates: start: 20181210, end: 20190107
  16. IRINOTECAN [Suspect]
     Active Substance: IRINOTECAN
     Indication: COLON CANCER
     Dosage: 92 MG/M2, 1X
     Route: 065
     Dates: start: 20180528, end: 20180528
  17. FLUOROURACIL. [Suspect]
     Active Substance: FLUOROURACIL
     Dosage: 1450 MG/M2, 1X
     Route: 041
     Dates: start: 20180528, end: 20180528
  18. FLUOROURACIL. [Suspect]
     Active Substance: FLUOROURACIL
     Dosage: 240 MG/M2, Q4W
     Route: 040
     Dates: start: 20180623, end: 20180721
  19. CALCIUM FOLINATE [Suspect]
     Active Substance: LEUCOVORIN CALCIUM
     Indication: COLON CANCER
     Dosage: 200 MG/M2, 1X
     Route: 065
     Dates: start: 20180528, end: 20180528
  20. CALCIUM FOLINATE [Suspect]
     Active Substance: LEUCOVORIN CALCIUM
     Dosage: 200 MG/M2, Q4W
     Route: 065
     Dates: start: 20180623, end: 20180721
  21. CALCIUM FOLINATE [Suspect]
     Active Substance: LEUCOVORIN CALCIUM
     Dosage: 200 MG/M2, Q4W
     Route: 065
     Dates: start: 20180813, end: 20180910
  22. CALCIUM FOLINATE [Suspect]
     Active Substance: LEUCOVORIN CALCIUM
     Dosage: 200 MG/M2, Q4W
     Route: 065
     Dates: start: 20181210, end: 20190107
  23. FLUOROURACIL. [Suspect]
     Active Substance: FLUOROURACIL
     Dosage: 240 MG/M2, Q4W
     Route: 040
     Dates: start: 20181210, end: 20190107
  24. FLUOROURACIL. [Suspect]
     Active Substance: FLUOROURACIL
     Dosage: 1450 MG/M2, 1X
     Route: 041
     Dates: start: 20190128, end: 20190128
  25. IRINOTECAN [Suspect]
     Active Substance: IRINOTECAN
     Dosage: 92 MG/M2, 1X
     Route: 065
     Dates: start: 20181009, end: 20181009
  26. FLUOROURACIL. [Suspect]
     Active Substance: FLUOROURACIL
     Dosage: 1450 MG/M2, Q4W
     Route: 041
     Dates: start: 20180623, end: 20180721
  27. FLUOROURACIL. [Suspect]
     Active Substance: FLUOROURACIL
     Dosage: 1450 MG/M2, Q4W
     Route: 041
     Dates: start: 20180813, end: 20180910
  28. AFLIBERCEPT [Suspect]
     Active Substance: AFLIBERCEPT
     Indication: COLON CANCER
     Dosage: 4 MG/KG, 1X
     Route: 041
     Dates: start: 20180528, end: 20180528
  29. AFLIBERCEPT [Suspect]
     Active Substance: AFLIBERCEPT
     Dosage: 4 MG/KG, Q4W
     Route: 041
     Dates: start: 20180623, end: 20180721
  30. CALCIUM FOLINATE [Suspect]
     Active Substance: LEUCOVORIN CALCIUM
     Dosage: 200 MG/M2, 1X
     Route: 065
     Dates: start: 20181117, end: 20181117
  31. FLUOROURACIL. [Suspect]
     Active Substance: FLUOROURACIL
     Dosage: 240 MG/M2, 1X
     Route: 040
     Dates: start: 20181009, end: 20181009
  32. FLUOROURACIL. [Suspect]
     Active Substance: FLUOROURACIL
     Dosage: 240 MG/M2, 1X
     Route: 040
     Dates: start: 20190128, end: 20190128

REACTIONS (2)
  - Pancytopenia [Recovered/Resolved]
  - Neutropenia [Recovered/Resolved]

NARRATIVE: CASE EVENT DATE: 20180616
